FAERS Safety Report 4363686-6 (Version None)
Quarter: 2004Q2

REPORT INFORMATION
  Report Type: 
  Country: None (occurrence: None)
  Receive Date: 20040521
  Receipt Date: 20040521
  Transmission Date: 20050107
  Serious: Yes (Hospitalization)
  Sender: FDA-Public Use
  Company Number: None

PATIENT
  Age: 79 Year
  Sex: Female
  Weight: 65.8 kg

DRUGS (2)
  1. HEPARIN [Suspect]
     Indication: CATHETER RELATED COMPLICATION
     Dosage: HEMODIALYSIS
     Route: 010
     Dates: start: 20040327, end: 20040427
  2. HEPARIN [Suspect]
     Indication: PROPHYLAXIS
     Dosage: HEMODIALYSIS
     Route: 010
     Dates: start: 20040327, end: 20040427

REACTIONS (4)
  - ACTIVATED PARTIAL THROMBOPLASTIN TIME PROLONGED [None]
  - DIVERTICULITIS [None]
  - LOWER GASTROINTESTINAL HAEMORRHAGE [None]
  - MALLORY-WEISS SYNDROME [None]
